FAERS Safety Report 8672742 (Version 2)
Quarter: 2012Q4

REPORT INFORMATION
  Report Type: 
  Country: US (occurrence: US)
  Receive Date: 20120719
  Receipt Date: 20121009
  Transmission Date: 20130627
  Serious: Yes (Other)
  Sender: FDA-Public Use
  Company Number: US-BRISTOL-MYERS SQUIBB COMPANY-16650897

PATIENT
  Age: 79 Year
  Sex: Male

DRUGS (32)
  1. NULOJIX [Suspect]
     Indication: IMMUNOSUPPRESSION
     Dosage: 6Apr, 17Apr
     Route: 042
     Dates: start: 20120403, end: 20120501
  2. PROGRAF [Concomitant]
     Dates: start: 20120625, end: 20120709
  3. MYFORTIC [Concomitant]
     Dosage: 1df= 540 B
10jul-11-jul12-180-units nos
     Dates: start: 20120625, end: 20120709
  4. PREDNISONE [Concomitant]
     Dosage: 1df= 2.5-units nos
10jul-11jul-12
     Dates: start: 20120625, end: 20120709
  5. CLONIDINE [Concomitant]
     Dates: start: 20120625, end: 20120709
  6. ASPIRIN [Concomitant]
     Dosage: 10Jul-11Jul12-per1D
     Dates: start: 20120625, end: 20120709
  7. COREG [Concomitant]
     Dates: start: 20120625, end: 20120709
  8. MINOXIDIL [Concomitant]
     Dates: start: 20120625, end: 20120709
  9. FERROUS SULFATE [Concomitant]
     Dates: start: 20120625, end: 20120709
  10. DIALYTE [Concomitant]
     Dates: start: 20120625, end: 20120709
  11. PRILOSEC [Concomitant]
     Dosage: 1df= 40-units nos
     Dates: start: 20120625, end: 20120709
  12. LISINOPRIL [Concomitant]
     Dosage: 1df= 2.5-units nos
     Dates: start: 20120625, end: 20120709
  13. BACTRIM [Concomitant]
     Dosage: 10jul-11jul-12
     Dates: start: 20120625, end: 20120709
  14. AMBIEN [Concomitant]
     Dates: start: 20120625, end: 20120709
  15. NEORAL [Concomitant]
     Dosage: 1df= 100+75-units nos
     Dates: start: 20120710, end: 20120711
  16. VALCYTE [Concomitant]
     Dates: start: 20120710, end: 20120711
  17. POTASSIUM CHLORIDE [Concomitant]
     Dates: start: 20120710, end: 20120711
  18. FORSENID [Concomitant]
     Dosage: 1df= 20-units nos
     Dates: start: 20120710, end: 20120711
  19. TOPROL [Concomitant]
     Dosage: 1df= 1/2 per day-25-units nos
     Dates: start: 20120710, end: 20120711
  20. NORVASC [Concomitant]
     Dosage: 1df= 2.5-units nos
     Dates: start: 20120710, end: 20120711
  21. CLONIDINE [Concomitant]
     Dosage: 1df= 0.1-units nos
     Dates: start: 20120710, end: 20120711
  22. PLAVIX [Concomitant]
     Dosage: 1df= 75-units nos
     Dates: start: 20120710, end: 20120711
  23. NYSTATIN [Concomitant]
     Dates: start: 20120625, end: 20120711
  24. ADVAIR [Concomitant]
     Dates: start: 20120710, end: 20120711
  25. FOLIC ACID [Concomitant]
     Dates: start: 20120710, end: 20120711
  26. SINGULAIR [Concomitant]
     Dosage: 1df= 10-units nos
     Dates: start: 20120710, end: 20120711
  27. FLOMAX [Concomitant]
     Dosage: 1df= 0.4-units nos
     Dates: start: 20120710, end: 20120711
  28. PROTONIX [Concomitant]
     Dosage: 1df= 40-units nos
     Dates: start: 20120710, end: 20120711
  29. MIRALAX [Concomitant]
     Dates: start: 20120710, end: 20120711
  30. NITROSTAT [Concomitant]
     Dates: start: 20120710, end: 20120711
  31. LEVEMIR [Concomitant]
     Dates: start: 20120710, end: 20120711
  32. NOVOLOG [Concomitant]
     Dates: start: 20120710, end: 20120711

REACTIONS (1)
  - Transplant rejection [Recovered/Resolved]
